FAERS Safety Report 16826684 (Version 1)
Quarter: 2019Q3

REPORT INFORMATION
  Report Type: Spontaneous
  Country: US (occurrence: US)
  Receive Date: 20190919
  Receipt Date: 20190919
  Transmission Date: 20191005
  Serious: No
  Sender: FDA-Public Use
  Company Number: US-ELI_LILLY_AND_COMPANY-US201909008478

PATIENT
  Sex: Female

DRUGS (8)
  1. GLIPIZIDE. [Suspect]
     Active Substance: GLIPIZIDE
     Indication: PRODUCT USED FOR UNKNOWN INDICATION
     Dosage: UNK UNK, UNKNOWN
     Route: 065
  2. HUMULIN N [Suspect]
     Active Substance: INSULIN HUMAN
     Dosage: 35 U, DAILY (BEFORE DINNER)  (LOWERED HER DOSE)
     Route: 058
  3. FARXIGA [Concomitant]
     Active Substance: DAPAGLIFLOZIN PROPANEDIOL
     Indication: TYPE 2 DIABETES MELLITUS
     Dosage: 10 MG, UNKNOWN
     Route: 065
  4. HUMULIN N [Suspect]
     Active Substance: INSULIN HUMAN
     Indication: TYPE 2 DIABETES MELLITUS
     Dosage: 50 U, TID (MORNING, NOON AND AFTERNOON)
     Route: 058
     Dates: start: 2013
  5. HUMULIN N [Suspect]
     Active Substance: INSULIN HUMAN
     Dosage: 50 U, EACH MORNING (LOWERED HER DOSE)
     Route: 058
  6. METFORMIN [Suspect]
     Active Substance: METFORMIN HYDROCHLORIDE
     Indication: PRODUCT USED FOR UNKNOWN INDICATION
     Dosage: UNK UNK, UNKNOWN
     Route: 065
  7. HUMULIN N [Suspect]
     Active Substance: INSULIN HUMAN
     Dosage: 50 U, TID (MORNING, NOON AND AFTERNOON)
     Route: 058
  8. HUMULIN N [Suspect]
     Active Substance: INSULIN HUMAN
     Dosage: 35 U, DAILY (BEFORE DINNER)  (LOWERED HER DOSE)
     Route: 058

REACTIONS (7)
  - Drug hypersensitivity [Unknown]
  - Peripheral swelling [Unknown]
  - Blood glucose increased [Unknown]
  - Drug ineffective [Unknown]
  - Swelling [Unknown]
  - Fluid retention [Unknown]
  - Overweight [Unknown]

NARRATIVE: CASE EVENT DATE: 2018
